FAERS Safety Report 17685460 (Version 1)
Quarter: 2020Q2

REPORT INFORMATION
  Report Type: Spontaneous
  Country: US (occurrence: US)
  Receive Date: 20200420
  Receipt Date: 20200420
  Transmission Date: 20200714
  Serious: No
  Sender: FDA-Public Use
  Company Number: None

PATIENT
  Age: 67 Year
  Sex: Male
  Weight: 95.85 kg

DRUGS (1)
  1. OCTAGAM IMMUNE GLOBULIN (HUMAN) [Suspect]
     Active Substance: HUMAN IMMUNOGLOBULIN G
     Indication: CHRONIC INFLAMMATORY DEMYELINATING POLYRADICULONEUROPATHY
     Dosage: ?          OTHER FREQUENCY:2 DAYS;?
     Route: 041
     Dates: start: 20200414, end: 20200415

REACTIONS (3)
  - Rash erythematous [None]
  - Rash pruritic [None]
  - Rash papular [None]

NARRATIVE: CASE EVENT DATE: 20200415
